FAERS Safety Report 18269719 (Version 1)
Quarter: 2020Q3

REPORT INFORMATION
  Report Type: Spontaneous
  Country: CA (occurrence: CA)
  Receive Date: 20200915
  Receipt Date: 20200915
  Transmission Date: 20201103
  Serious: Yes (Hospitalization)
  Sender: FDA-Public Use
  Company Number: CA-BAUSCH-BL-2020-025906

PATIENT
  Age: 48 Year
  Sex: Female
  Weight: 106 kg

DRUGS (23)
  1. TRASTUZUMAB. [Suspect]
     Active Substance: TRASTUZUMAB
     Route: 065
  2. PEGFILGRASTIM [Suspect]
     Active Substance: PEGFILGRASTIM
     Indication: PRODUCT USED FOR UNKNOWN INDICATION
     Route: 058
  3. DOXORUBICIN [Suspect]
     Active Substance: DOXORUBICIN
     Indication: BREAST CANCER
     Dosage: INTRAVENOUS
     Route: 042
  4. DOXORUBICIN HYDROCHLORIDE. [Suspect]
     Active Substance: DOXORUBICIN HYDROCHLORIDE
     Indication: BREAST CANCER
     Route: 042
  5. PACLITAXEL. [Suspect]
     Active Substance: PACLITAXEL
     Indication: SUPPORTIVE CARE
     Route: 042
  6. PEGFILGRASTIM [Suspect]
     Active Substance: PEGFILGRASTIM
     Indication: SUPPORTIVE CARE
  7. RANITIDINE. [Suspect]
     Active Substance: RANITIDINE
     Indication: TARDIVE DYSKINESIA
     Route: 048
  8. APREPITANT. [Suspect]
     Active Substance: APREPITANT
     Route: 048
  9. ONDANSETRON [Suspect]
     Active Substance: ONDANSETRON
     Route: 048
  10. LORAZEPAM. [Suspect]
     Active Substance: LORAZEPAM
     Indication: TARDIVE DYSKINESIA
     Route: 048
  11. LEVOFLOXACIN. [Suspect]
     Active Substance: LEVOFLOXACIN
     Indication: TARDIVE DYSKINESIA
     Route: 048
  12. PACLITAXEL. [Suspect]
     Active Substance: PACLITAXEL
     Dosage: LIQUID INTRAVENOUS
     Route: 042
  13. TYLENOL WITH CODEINE [Suspect]
     Active Substance: ACETAMINOPHEN\CODEINE PHOSPHATE
     Indication: TARDIVE DYSKINESIA
     Route: 065
  14. TRASTUZUMAB. [Suspect]
     Active Substance: TRASTUZUMAB
     Indication: TARDIVE DYSKINESIA
     Route: 065
  15. BETAMETHASONE. [Suspect]
     Active Substance: BETAMETHASONE
     Indication: TARDIVE DYSKINESIA
     Route: 048
  16. METOCLOPRAMIDE. [Suspect]
     Active Substance: METOCLOPRAMIDE
     Indication: TARDIVE DYSKINESIA
     Route: 048
  17. ENOXAPARIN [Suspect]
     Active Substance: ENOXAPARIN
     Indication: TARDIVE DYSKINESIA
     Route: 058
  18. PACLITAXEL. [Suspect]
     Active Substance: PACLITAXEL
     Indication: BREAST CANCER
     Route: 042
  19. PROCYTOX [Suspect]
     Active Substance: CYCLOPHOSPHAMIDE
     Indication: BREAST CANCER
     Route: 042
  20. DEXAMETHASONE. [Suspect]
     Active Substance: DEXAMETHASONE
     Indication: SUPPORTIVE CARE
     Route: 048
  21. FILGRASTIM [Suspect]
     Active Substance: FILGRASTIM
     Indication: SUPPORTIVE CARE
     Route: 048
  22. APREPITANT. [Suspect]
     Active Substance: APREPITANT
     Indication: SUPPORTIVE CARE
     Route: 048
  23. ONDANSETRON [Suspect]
     Active Substance: ONDANSETRON
     Indication: SUPPORTIVE CARE
     Route: 048

REACTIONS (11)
  - Dyspnoea [Recovered/Resolved]
  - Pyrexia [Recovered/Resolved]
  - Cough [Recovered/Resolved]
  - Gastrointestinal disorder [Recovered/Resolved]
  - Hypoxia [Recovered/Resolved]
  - Nausea [Recovered/Resolved]
  - Computerised tomogram thorax abnormal [Recovered/Resolved]
  - Atelectasis [Recovered/Resolved]
  - Fatigue [Recovered/Resolved]
  - Rash [Recovered/Resolved]
  - Off label use [Recovered/Resolved]
